FAERS Safety Report 10844736 (Version 4)
Quarter: 2015Q2

REPORT INFORMATION
  Report Type: Spontaneous
  Country: US (occurrence: US)
  Receive Date: 20150220
  Receipt Date: 20150629
  Transmission Date: 20150821
  Serious: Yes (Other)
  Sender: FDA-Public Use
  Company Number: US-BAYER-2015-022753

PATIENT
  Age: 24 Year
  Sex: Female
  Weight: 55.78 kg

DRUGS (3)
  1. MIRENA [Suspect]
     Active Substance: LEVONORGESTREL
     Indication: CONTRACEPTION
     Dosage: 20 MCG/24HR, CONT
     Route: 015
     Dates: start: 20080807, end: 20081029
  2. MIRENA [Suspect]
     Active Substance: LEVONORGESTREL
     Indication: CONTRACEPTION
     Dosage: 20 MCG/24HR, CONT
     Route: 015
     Dates: start: 20080911, end: 20110920
  3. DEPO-PROVERA [Concomitant]
     Active Substance: MEDROXYPROGESTERONE ACETATE
     Indication: CONTRACEPTION

REACTIONS (18)
  - Device use error [None]
  - Burning sensation [None]
  - Medical device discomfort [None]
  - Device issue [None]
  - Pain [None]
  - Vaginitis bacterial [None]
  - Abasia [None]
  - Uterine perforation [None]
  - Uterine perforation [None]
  - Complication of device removal [None]
  - Urinary tract infection [None]
  - Dyspareunia [None]
  - Device issue [None]
  - Post procedural haemorrhage [None]
  - Emotional distress [None]
  - Pruritus [None]
  - Procedural pain [None]
  - Injury [None]

NARRATIVE: CASE EVENT DATE: 20080818
